FAERS Safety Report 9258434 (Version 1)
Quarter: 2013Q1

REPORT INFORMATION
  Report Type: Spontaneous
  Country: US (occurrence: None)
  Receive Date: 20121212
  Receipt Date: 20121212
  Transmission Date: 20140127
  Serious: No
  Sender: FDA-Public Use
  Company Number: 1209USA009809

PATIENT
  Age: 56 Year
  Sex: Male

DRUGS (3)
  1. VICTRELIS (BOCEPREVIR) CAPSULE [Suspect]
     Indication: HEPATITIS C
     Dates: start: 20120721
  2. REBETOL (RIBAVIRIN) [Suspect]
     Dates: start: 20120623
  3. PEGASYS [Suspect]
     Dates: start: 20120623

REACTIONS (1)
  - Red blood cell count decreased [None]
